FAERS Safety Report 9012281 (Version 2)
Quarter: 2013Q1

REPORT INFORMATION
  Report Type: Spontaneous
  Country: DK (occurrence: None)
  Receive Date: 20121231
  Receipt Date: 20130227
  Transmission Date: 20140127
  Serious: Yes (Death, Other)
  Sender: FDA-Public Use
  Company Number: 2012DE0454

PATIENT
  Age: 6 Month
  Sex: Female

DRUGS (2)
  1. KEPIVANCE [Suspect]
     Indication: LUNG DISORDER
     Route: 042
     Dates: start: 20121015, end: 20121017
  2. DEXAMETHASONE [Suspect]
     Indication: LUNG DISORDER

REACTIONS (8)
  - Death [None]
  - Respiratory failure [None]
  - Pulmonary hypertension [None]
  - Right ventricular failure [None]
  - Hepatoblastoma [None]
  - Myocardial fibrosis [None]
  - Body temperature fluctuation [None]
  - Blood triglycerides increased [None]
